FAERS Safety Report 15189465 (Version 6)
Quarter: 2018Q4

REPORT INFORMATION
  Report Type: Spontaneous
  Country: PT (occurrence: PT)
  Receive Date: 20180724
  Receipt Date: 20181219
  Transmission Date: 20190204
  Serious: Yes (Hospitalization, Other)
  Sender: FDA-Public Use
  Company Number: PT-AUROBINDO-AUR-APL-2018-036238

PATIENT
  Age: 14 Year
  Sex: Male

DRUGS (15)
  1. ALPRAZOLAM. [Suspect]
     Active Substance: ALPRAZOLAM
     Indication: ANXIETY
     Dosage: 1 MILLIGRAM, DAILY
     Route: 065
  2. ALPRAZOLAM. [Suspect]
     Active Substance: ALPRAZOLAM
     Dosage: 1 MILLIGRAM, DAILY
     Route: 065
     Dates: start: 201506
  3. ALPRAZOLAM. [Suspect]
     Active Substance: ALPRAZOLAM
     Dosage: 0.75 MILLIGRAM, DAILY
     Route: 065
  4. FLUVOXAMINE [Suspect]
     Active Substance: FLUVOXAMINE
     Dosage: 100 MG, QD
  5. RISPERIDONE. [Suspect]
     Active Substance: RISPERIDONE
     Dosage: RESTARTED
     Route: 065
  6. RISPERIDONE. [Suspect]
     Active Substance: RISPERIDONE
     Dosage: UNK
  7. FLUVOXAMINE [Suspect]
     Active Substance: FLUVOXAMINE
     Indication: PRODUCT USED FOR UNKNOWN INDICATION
     Dosage: 125 MILLIGRAM, DAILY
     Route: 065
     Dates: start: 201506
  8. FLUVOXAMINE [Suspect]
     Active Substance: FLUVOXAMINE
     Indication: OBSESSIVE-COMPULSIVE DISORDER
     Dosage: 150 MG, QD
  9. RISPERIDONE. [Suspect]
     Active Substance: RISPERIDONE
     Dosage: UNSPECIFIED DOSE
     Route: 065
  10. ALPRAZOLAM. [Suspect]
     Active Substance: ALPRAZOLAM
     Dosage: DOSE INCREASED
     Route: 065
     Dates: start: 201508
  11. RISPERIDONE. [Suspect]
     Active Substance: RISPERIDONE
     Dosage: 0.5 MILLIGRAM, DAILY
     Route: 065
     Dates: start: 201509
  12. RISPERIDONE. [Suspect]
     Active Substance: RISPERIDONE
     Indication: ANXIETY
     Dosage: 0.5 MILLIGRAM, DAILY, INCREASED DOSE
     Route: 065
     Dates: start: 201509
  13. ALPRAZOLAM. [Suspect]
     Active Substance: ALPRAZOLAM
     Indication: OBSESSIVE-COMPULSIVE DISORDER
     Dosage: 0.5 MILLIGRAM, DAILY
     Route: 065
  14. FLUVOXAMINE [Suspect]
     Active Substance: FLUVOXAMINE
     Indication: ANXIETY
     Dosage: DOSE WAS ADJUSTED
     Route: 065
     Dates: start: 201509
  15. RISPERIDONE. [Suspect]
     Active Substance: RISPERIDONE
     Indication: OBSESSIVE-COMPULSIVE DISORDER
     Dosage: 0.5 MILLIGRAM, DAILY
     Route: 065

REACTIONS (13)
  - Renal injury [Unknown]
  - Therapeutic response decreased [Unknown]
  - Acute kidney injury [Recovered/Resolved]
  - Obsessive-compulsive disorder [Recovering/Resolving]
  - Weight decreased [Recovered/Resolved]
  - Off label use [Recovered/Resolved]
  - Bradycardia [Recovered/Resolved]
  - Gastroenteritis [Recovered/Resolved]
  - Drug ineffective [Unknown]
  - Disease progression [Recovering/Resolving]
  - Dehydration [Recovered/Resolved]
  - Cyclothymic disorder [Recovered/Resolved]
  - Condition aggravated [Recovered/Resolved]

NARRATIVE: CASE EVENT DATE: 2015
